FAERS Safety Report 14317660 (Version 2)
Quarter: 2018Q1

REPORT INFORMATION
  Report Type: Spontaneous
  Country: JP (occurrence: JP)
  Receive Date: 20171222
  Receipt Date: 20180119
  Transmission Date: 20180509
  Serious: Yes (Hospitalization, Other)
  Sender: FDA-Public Use
  Company Number: JP-GILEAD-2017-0312149

PATIENT
  Age: 49 Year
  Sex: Male

DRUGS (3)
  1. HARVONI [Suspect]
     Active Substance: LEDIPASVIR\SOFOSBUVIR
     Indication: CHRONIC HEPATITIS C
     Dosage: 1 DF, UNK
     Route: 048
     Dates: start: 20171113, end: 20171219
  2. SELENICA R [Concomitant]
     Active Substance: VALPROATE SODIUM
     Indication: EPILEPSY
     Dosage: 800 MG, UNK
     Route: 048
     Dates: start: 2012
  3. GABAPEN [Concomitant]
     Active Substance: GABAPENTIN
     Indication: EPILEPSY
     Dosage: 400 MG, UNK
     Route: 048
     Dates: start: 2012

REACTIONS (1)
  - Cerebral haemorrhage [Recovered/Resolved]

NARRATIVE: CASE EVENT DATE: 20171219
